FAERS Safety Report 18840318 (Version 1)
Quarter: 2021Q1

REPORT INFORMATION
  Report Type: Spontaneous
  Country: US (occurrence: US)
  Receive Date: 20210203
  Receipt Date: 20210203
  Transmission Date: 20210419
  Serious: No
  Sender: FDA-Public Use
  Company Number: US-PRAGMA-2020-US-026415

PATIENT
  Sex: Female
  Weight: 102.51 kg

DRUGS (4)
  1. PAXIL [Concomitant]
     Active Substance: PAROXETINE HYDROCHLORIDE
     Route: 065
  2. RITALIN [Concomitant]
     Active Substance: METHYLPHENIDATE HYDROCHLORIDE
     Route: 065
  3. IRON [Concomitant]
     Active Substance: IRON
     Route: 065
  4. KEFLEX [Suspect]
     Active Substance: CEPHALEXIN
     Indication: TOOTH IMPACTED
     Dosage: AS PRESCRIBED X 3DAYS
     Route: 048
     Dates: start: 2003, end: 2003

REACTIONS (4)
  - Hypersensitivity [Recovered/Resolved]
  - Urticaria [Recovered/Resolved]
  - Rash macular [Recovered/Resolved]
  - Pruritus [Recovered/Resolved]

NARRATIVE: CASE EVENT DATE: 2003
